FAERS Safety Report 6841401-1 (Version None)
Quarter: 2010Q3

REPORT INFORMATION
  Report Type: 
  Country: None (occurrence: None)
  Receive Date: 20100714
  Receipt Date: 20070706
  Transmission Date: 20110219
  Serious: Yes (Other)
  Sender: FDA-Public Use
  Company Number: US-PFIZER INC-2007056973

PATIENT
  Sex: Male
  Weight: 90.7 kg

DRUGS (9)
  1. CHANTIX [Suspect]
     Indication: SMOKING CESSATION THERAPY
     Dates: start: 20070703, end: 20070703
  2. PENICILLIN NOS [Suspect]
  3. ACETYLSALICYLIC ACID [Concomitant]
  4. GLIPIZIDE [Concomitant]
  5. SIMVASTATIN [Concomitant]
  6. TOPROL-XL [Concomitant]
  7. LOTENSIN [Concomitant]
  8. SITAGLIPTIN [Concomitant]
  9. METFORMIN HCL [Concomitant]

REACTIONS (1)
  - HYPERSENSITIVITY [None]
